FAERS Safety Report 7562671-0 (Version None)
Quarter: 2011Q2

REPORT INFORMATION
  Report Type: 
  Country: None (occurrence: None)
  Receive Date: 20110621
  Receipt Date: 20110621
  Transmission Date: 20111010
  Serious: Yes (Disabling)
  Sender: FDA-Public Use
  Company Number: None

PATIENT
  Age: 65 Year
  Sex: Female

DRUGS (1)
  1. VENOFER [Suspect]
     Indication: IRON DEFICIENCY
     Dosage: 500MG IN 250ML NS ONCE IV
     Route: 042
     Dates: start: 20110615, end: 20110615

REACTIONS (2)
  - RASH GENERALISED [None]
  - OEDEMA PERIPHERAL [None]
